FAERS Safety Report 5827333-6 (Version None)
Quarter: 2008Q3

REPORT INFORMATION
  Report Type: 
  Country: None (occurrence: None)
  Receive Date: 20080730
  Receipt Date: 20080723
  Transmission Date: 20090109
  Serious: Yes (Disabling)
  Sender: FDA-Public Use
  Company Number: CA-ASTRAZENECA-2008UW14542

PATIENT
  Sex: Female

DRUGS (3)
  1. CRESTOR [Suspect]
     Route: 048
     Dates: start: 20080530, end: 20080711
  2. SLEEP MEDICATION [Concomitant]
     Indication: SLEEP DISORDER
  3. BLOOD PRESSURE MEDICATION [Concomitant]
     Indication: BLOOD PRESSURE

REACTIONS (4)
  - ANOREXIA [None]
  - DEPRESSION [None]
  - LETHARGY [None]
  - SUICIDAL IDEATION [None]
